FAERS Safety Report 7606438-3 (Version None)
Quarter: 2011Q3

REPORT INFORMATION
  Report Type: 
  Country: None (occurrence: None)
  Receive Date: 20110705
  Receipt Date: 20110628
  Transmission Date: 20111222
  Serious: Yes (Hospitalization, Other)
  Sender: FDA-Public Use
  Company Number: 2011SP028952

PATIENT
  Age: 42 Year
  Sex: Female

DRUGS (2)
  1. PREGNYL [Suspect]
     Indication: ASSISTED FERTILISATION
     Dosage: 1500 IU; IM
     Route: 030
  2. PUREGON (FOLLITROPIN BETA /01348901/) [Suspect]
     Indication: ASSISTED FERTILISATION
     Dosage: 450 IU;QD;

REACTIONS (15)
  - CEREBRAL VENOUS THROMBOSIS [None]
  - NEUROLOGICAL SYMPTOM [None]
  - PREGNANCY [None]
  - HEADACHE [None]
  - MATERNAL EXPOSURE BEFORE PREGNANCY [None]
  - OLIGURIA [None]
  - BLOOD CREATININE INCREASED [None]
  - CEREBRAL INFARCTION [None]
  - SUPERIOR SAGITTAL SINUS THROMBOSIS [None]
  - OVARIAN HYPERSTIMULATION SYNDROME [None]
  - ABORTION INDUCED [None]
  - HAEMATOCRIT INCREASED [None]
  - HAEMOGLOBIN INCREASED [None]
  - HEMIPARESIS [None]
  - INTRA-UTERINE DEATH [None]
